FAERS Safety Report 23063029 (Version 2)
Quarter: 2023Q4

REPORT INFORMATION
  Report Type: Report from Study
  Country: IE (occurrence: IE)
  Receive Date: 20231013
  Receipt Date: 20231122
  Transmission Date: 20240110
  Serious: Yes (Death, Hospitalization, Other)
  Sender: FDA-Public Use
  Company Number: IE-002147023-NVSC2023IE194602

PATIENT
  Age: 74 Year
  Sex: Female

DRUGS (1)
  1. KISQALI [Suspect]
     Active Substance: RIBOCICLIB
     Indication: Breast cancer metastatic
     Dosage: 600 MG
     Route: 048

REACTIONS (9)
  - Death [Fatal]
  - Viral infection [Unknown]
  - Neutropenia [Unknown]
  - Cardiomegaly [Unknown]
  - Epigastric discomfort [Recovering/Resolving]
  - Oral pain [Unknown]
  - Oropharyngeal pain [Unknown]
  - Nausea [Recovering/Resolving]
  - Cough [Unknown]
